FAERS Safety Report 7243683-3 (Version None)
Quarter: 2011Q1

REPORT INFORMATION
  Report Type: 
  Country: None (occurrence: None)
  Receive Date: 20110125
  Receipt Date: 20110121
  Transmission Date: 20110831
  Serious: Yes (Life-Threatening)
  Sender: FDA-Public Use
  Company Number: PHHY2010CO87600

PATIENT
  Sex: Male

DRUGS (2)
  1. SECOTEX [Concomitant]
     Dosage: 0.4 MG, UNK
  2. RASILEZ HCT [Suspect]
     Indication: HYPERTENSION
     Dosage: 300/12.5 MG PER DAY
     Route: 048
     Dates: start: 20101124, end: 20101214

REACTIONS (2)
  - BLOOD CREATININE INCREASED [None]
  - HYPERTENSIVE CRISIS [None]
